FAERS Safety Report 7062037-6 (Version None)
Quarter: 2010Q4

REPORT INFORMATION
  Report Type: 
  Country: None (occurrence: None)
  Receive Date: 20101026
  Receipt Date: 20101020
  Transmission Date: 20110411
  Serious: Yes (Hospitalization)
  Sender: FDA-Public Use
  Company Number: A0800211A

PATIENT
  Sex: Male

DRUGS (2)
  1. AVANDIA [Suspect]
     Indication: DIABETES MELLITUS
     Dosage: 4MG TWICE PER DAY
     Route: 048
     Dates: start: 19991105, end: 20031201
  2. AVANDAMET [Suspect]
     Route: 048
     Dates: start: 20031201, end: 20041201

REACTIONS (1)
  - MYOCARDIAL INFARCTION [None]
